FAERS Safety Report 7412399-2 (Version None)
Quarter: 2011Q2

REPORT INFORMATION
  Report Type: 
  Country: None (occurrence: None)
  Receive Date: 20110405
  Receipt Date: 20110318
  Transmission Date: 20111010
  Serious: Yes (Other)
  Sender: FDA-Public Use
  Company Number: AUR-APL-2011-01053

PATIENT
  Sex: Female

DRUGS (18)
  1. ATROPINE/DIPHENOXYLATE [Suspect]
     Indication: COLITIS
     Dosage: 0.25MG/2.5MG-PRN (NO USE IN }2 YEARS)
  2. PREGABALIN [Suspect]
     Indication: NEURALGIA
     Dosage: 75MG-BID
  3. HYDROMORPHINE [Suspect]
     Indication: BACK PAIN
     Dosage: 4MG-QID PRN
  4. CLONAZEPAM [Suspect]
     Indication: RESTLESS LEGS SYNDROME
     Dosage: 0.5 MG-DAILY
  5. HYDROCHLOROTHIAZIDE [Suspect]
     Indication: OEDEMA PERIPHERAL
     Dosage: 25MG-DAILY
  6. DULOXETINE [Suspect]
     Indication: DEPRESSION
     Dosage: 60MG-DAILY
  7. DULOXETINE [Suspect]
     Indication: NEURALGIA
     Dosage: 60MG-DAILY
  8. ATORVASTATIN [Suspect]
     Indication: HYPERCHOLESTEROLAEMIA
     Dosage: 40MG-DAILY
  9. FENTANYL [Suspect]
     Indication: BACK PAIN
     Dosage: 75?G/HR-EVERY 3 DAYS
  10. BUPROPRION [Suspect]
     Indication: DEPRESSION
     Dosage: 300-MG-DAILY
  11. LEVOTHYROXINE [Suspect]
     Indication: HYPOTHYROIDISM
     Dosage: 0.112MG-DAILY
  12. RABEPRAZOLE SODIUM [Suspect]
     Indication: GASTROOESOPHAGEAL REFLUX DISEASE
     Dosage: 20MG-DAILY
  13. CLONIDINE [Suspect]
     Indication: HYPERHIDROSIS
     Dosage: 0.1MG-DAILY
  14. MULTI-VITAMIN [Suspect]
     Indication: ROUTINE HEALTH MAINTENANCE
     Dosage: 1TAB-QD
  15. TAMOXIFEN [Suspect]
     Indication: BREAST CANCER
     Dosage: 20MG-DAILY
  16. CYCLOBENZAPRINE [Suspect]
     Indication: RESTLESS LEGS SYNDROME
     Dosage: 20MG-DAILY
  17. CALCIUM CITRATE + VITAMIN D [Suspect]
     Indication: OSTEOPOROSIS PROPHYLAXIS
     Dosage: 630MG-TID
  18. MELOXICAM [Suspect]
     Indication: FIBROMYALGIA
     Dosage: 7.5MG-BID

REACTIONS (2)
  - FALL [None]
  - ORTHOSTATIC HYPOTENSION [None]
